FAERS Safety Report 22812171 (Version 6)
Quarter: 2023Q4

REPORT INFORMATION
  Report Type: Spontaneous
  Country: CH (occurrence: CH)
  Receive Date: 20230811
  Receipt Date: 20231022
  Transmission Date: 20240110
  Serious: Yes (Other)
  Sender: FDA-Public Use
  Company Number: CH-JNJFOC-20230821136

PATIENT
  Age: 4 Decade
  Sex: Male

DRUGS (1)
  1. STELARA [Suspect]
     Active Substance: USTEKINUMAB
     Indication: Colitis ulcerative
     Route: 058
     Dates: start: 202208

REACTIONS (3)
  - Malignant polyp [Unknown]
  - Colectomy [Unknown]
  - Gastrointestinal tract adenoma [Unknown]

NARRATIVE: CASE EVENT DATE: 20230719
